FAERS Safety Report 19003734 (Version 2)
Quarter: 2021Q1

REPORT INFORMATION
  Report Type: Spontaneous
  Country: PL (occurrence: PL)
  Receive Date: 20210312
  Receipt Date: 20210330
  Transmission Date: 20210420
  Serious: Yes (Hospitalization, Other)
  Sender: FDA-Public Use
  Company Number: PL-PFIZER INC-2021242495

PATIENT
  Age: 74 Year
  Sex: Male

DRUGS (8)
  1. RAMIPRIL. [Suspect]
     Active Substance: RAMIPRIL
     Dosage: 2.5 MG
  2. ATORVASTATIN CALCIUM. [Suspect]
     Active Substance: ATORVASTATIN CALCIUM
     Dosage: 20 MG
  3. DOXAZOSIN [Concomitant]
     Active Substance: DOXAZOSIN MESYLATE
     Indication: PRODUCT USED FOR UNKNOWN INDICATION
     Dosage: 4 MG, QD
  4. FUROSEMIDE. [Concomitant]
     Active Substance: FUROSEMIDE
     Dosage: 80 MG, BID 160?100 MG/24 H IN THE FIRST DAYS
     Route: 042
  5. ACETYLSALICYLIC ACID [Suspect]
     Active Substance: ASPIRIN
     Dosage: 75 MG
  6. BISOPROLOL [Suspect]
     Active Substance: BISOPROLOL
     Indication: PRODUCT USED FOR UNKNOWN INDICATION
     Dosage: 2.5 MG
  7. EPLERENONE. [Concomitant]
     Active Substance: EPLERENONE
     Dosage: 25 MG, QD
  8. POTASSIUM [Concomitant]
     Active Substance: POTASSIUM
     Dosage: 2 DF, BID

REACTIONS (19)
  - Dyspnoea exertional [Unknown]
  - Oedema peripheral [Unknown]
  - Jugular vein distension [Unknown]
  - Mitral valve incompetence [Unknown]
  - Hepatomegaly [Unknown]
  - Cardiac failure chronic [Unknown]
  - Orthopnoea [Unknown]
  - Abdominal distension [Unknown]
  - Left ventricular hypertrophy [Unknown]
  - Cardiac failure [Unknown]
  - Ejection fraction decreased [Unknown]
  - Laboratory test abnormal [Unknown]
  - Cardiac murmur [Unknown]
  - Gait inability [Unknown]
  - Abnormal precordial movement [Unknown]
  - Rales [Unknown]
  - Ascites [Unknown]
  - Dyspnoea at rest [Unknown]
  - Peripheral swelling [Unknown]
